FAERS Safety Report 6122973-1 (Version None)
Quarter: 2009Q1

REPORT INFORMATION
  Report Type: 
  Country: None (occurrence: None)
  Receive Date: 20090318
  Receipt Date: 20080227
  Transmission Date: 20090719
  Serious: No
  Sender: FDA-Public Use
  Company Number: US-AMGEN-KDL267453

PATIENT
  Sex: Female

DRUGS (3)
  1. NEULASTA [Suspect]
     Indication: CHEMOTHERAPY
     Route: 058
     Dates: start: 20080222
  2. TAXOL [Concomitant]
  3. CISPLATIN [Concomitant]

REACTIONS (3)
  - FLUSHING [None]
  - PRURITUS [None]
  - RASH GENERALISED [None]
